FAERS Safety Report 5958006-7 (Version None)
Quarter: 2008Q4

REPORT INFORMATION
  Report Type: 
  Country: None (occurrence: None)
  Receive Date: 20081119
  Receipt Date: 20081110
  Transmission Date: 20090506
  Serious: Yes (Hospitalization)
  Sender: FDA-Public Use
  Company Number: PHHY2008DE27890

PATIENT
  Sex: Female

DRUGS (10)
  1. LEPONEX [Suspect]
     Indication: SCHIZOPHRENIA, RESIDUAL TYPE
     Dosage: 600 MG/DAY
     Route: 048
  2. REMERGIL [Suspect]
     Dosage: 15-45 MG/DAY
     Route: 048
     Dates: start: 20071001, end: 20071209
  3. REMERGIL [Suspect]
     Dosage: 60 MG/DAY
     Route: 048
     Dates: start: 20071210, end: 20080129
  4. REMERGIL [Suspect]
     Dosage: 45 MG/DAY
     Route: 048
     Dates: start: 20080130, end: 20080218
  5. REMERGIL [Suspect]
     Dosage: 30 MG/DAY
     Route: 048
     Dates: start: 20080219, end: 20080220
  6. REMERGIL [Suspect]
     Dosage: 15 MG/DAY
     Route: 048
     Dates: start: 20080221, end: 20080221
  7. REMERGIL [Suspect]
     Dosage: 2.5 MG/DAY
     Route: 048
  8. REMERGIL [Suspect]
     Dosage: 15 MG/DAY
     Route: 048
     Dates: start: 20080208
  9. LORAZEPAM [Suspect]
     Dosage: 2.5 MG/DAY
     Route: 048
  10. HALDOL [Suspect]
     Dosage: 15 MG/DAY
     Route: 048
     Dates: start: 20080208

REACTIONS (6)
  - ALANINE AMINOTRANSFERASE INCREASED [None]
  - ASPARTATE AMINOTRANSFERASE INCREASED [None]
  - GAMMA-GLUTAMYLTRANSFERASE INCREASED [None]
  - HEPATIC ENZYME INCREASED [None]
  - HEPATIC STEATOSIS [None]
  - KIDNEY DUPLEX [None]
